FAERS Safety Report 6670778-5 (Version None)
Quarter: 2010Q2

REPORT INFORMATION
  Report Type: 
  Country: None (occurrence: None)
  Receive Date: 20100407
  Receipt Date: 20100326
  Transmission Date: 20101027
  Serious: Yes (Hospitalization)
  Sender: FDA-Public Use
  Company Number: NL-MEDIMMUNE-MEDI-0010882

PATIENT
  Sex: Female
  Weight: 7.8 kg

DRUGS (2)
  1. SYNAGIS [Suspect]
     Route: 030
     Dates: start: 20090903, end: 20100216
  2. SYNAGIS [Suspect]
     Route: 030
     Dates: start: 20100318

REACTIONS (4)
  - DYSPNOEA [None]
  - MALAISE [None]
  - PYREXIA [None]
  - RESPIRATION ABNORMAL [None]
